FAERS Safety Report 7965476-1 (Version None)
Quarter: 2011Q4

REPORT INFORMATION
  Report Type: 
  Country: None (occurrence: None)
  Receive Date: 20111121
  Receipt Date: 20110826
  Transmission Date: 20120403
  Serious: No
  Sender: FDA-Public Use
  Company Number: 1000023161

PATIENT
  Age: 54 Year
  Sex: Female

DRUGS (7)
  1. ALEVE (NAPROXEN SODIUM) (NAPROXEN SODIUM) [Concomitant]
  2. PRISTIQ [Suspect]
     Indication: DEPRESSION
     Dosage: 50 MG (50 MG), ORAL
     Route: 048
     Dates: start: 20110819, end: 20110823
  3. VIIBRYD [Suspect]
     Indication: DEPRESSION
     Dosage: 10 MG (10 MG, 1 IN 1 D), ORAL
     Route: 048
     Dates: start: 20110821
  4. PRISTIQ [Suspect]
     Indication: DEPRESSION
     Dosage: 100 MG (100 MG, 1 IN 1 D), ORAL
     Route: 048
     Dates: start: 20100101, end: 20110818
  5. XANAX [Concomitant]
  6. PROAIR (HFA (SALBUTAMOL SULFATE) (SALBUTAMOL SULFATE) [Concomitant]
  7. NEXIUM [Concomitant]

REACTIONS (3)
  - HYPERHIDROSIS [None]
  - DIZZINESS [None]
  - ASTHENIA [None]
